FAERS Safety Report 9928712 (Version 1)
Quarter: 2014Q1

REPORT INFORMATION
  Report Type: Spontaneous
  Country: CN (occurrence: None)
  Receive Date: 20140224
  Receipt Date: 20140224
  Transmission Date: 20141002
  Serious: Yes (Death, Hospitalization)
  Sender: FDA-Public Use
  Company Number: FK201400586

PATIENT
  Age: 29 Year
  Sex: Male

DRUGS (11)
  1. CISPLATIN (MANUFACTURER UKNOWN) (CISPLATIN) (CISPLATIN) [Suspect]
     Indication: NON-HODGKIN^S LYMPHOMA STAGE IV
     Route: 042
  2. CYTARBINE(MANUFACTURER UKNOWN)(CYTARBINE)(CYTARBINE) [Suspect]
     Indication: NON-HODGKIN^S LYMPHOMA STAGE IV
     Dosage: 4000 MG/M2, 2 G/12 H ON DAY 2, INTRAVENOUS (NOT OTHERWISE SPECIFIED)
     Route: 042
  3. IFOSFAMIDE (MANUFACTURER UNKNOWN) (IFOSFAMIDE) (IFOSFAMIDE) [Suspect]
     Indication: NON-HODGKIN^S LYMPHOMA STAGE IV
     Dosage: 1300 MG/M2, INTRAVENOUS (NOT OTHERWISE SPECIFIED
     Route: 042
  4. ET OPOSIDE (MANUFACTURER UNKNOWN) (ETOPOSIDE)(ETOPOSIDE) [Suspect]
     Indication: NON-HODGKIN^S LYMPHOMA STAGE IV
     Dosage: 65 MG/M2, ON DAY 1-3, INTRAVENOUS (NOT OTHERWISE SPECIFIED)
     Route: 042
  5. MITOXANTRONE (MANUFACTURER UNKNOWN) (MITOXANTRONE) [Suspect]
     Indication: NON-HODGKIN^S LYMPHOMA STAGE IV
     Dosage: 12 MG/M2, ON DAYS 1-3, INTRAVENOUS (NOT OTHERWISE SPECIFIED)
     Route: 042
  6. DEXAMETHASONE INJECTION (MANUFACTURER UNKNOWN) (DEXAMETHASONE SODIUM PHOSPHATE)(DEXMETHASONE SODIUM PHOSPHATE) [Suspect]
     Indication: NON-HODGKIN^S LYMPHOMA STAGE IV
     Dosage: 40 MG, ON DAYS 1-4, INTRAVENOUS (NOT OTHERWISE SPECIFIED)
     Route: 042
  7. CYCLOPHOSPHAMIDE (MANUFACTURER UNKNOWN) (CYCLOPHOPHAMIDE) [Suspect]
     Indication: NON-HODGKIN^S LYMPHOMA STAGE IV
     Dosage: 750 MG/M2, ON DAY 1, INTRAVENOUS (NOT OTHERWISE SPECIFIED)
     Route: 042
  8. ANDRIAMYCIN(DOXORUBICIN)(DOXORUBICIN) [Suspect]
     Indication: NON-HODGKIN^S LYMPHOMA STAGE IV
     Dosage: 50 MG/M2, ON DAY 1, INTRAVENOUS  (NOT OTHERWISE SPECIFIED)
     Route: 042
  9. VINCRISTINE(VINCRISTINE)(VINCRISTINE) [Suspect]
     Indication: NON-HODGKIN^S LYMPHOMA STAGE IV
     Dosage: 1.4 MG/M2, ON DAY 1, INTRAVENOUS (NOT OTHERWISE SPECIFIED)
     Route: 042
  10. PREDNISONE(PREDNISONE)(PREDNISONE) [Suspect]
     Indication: NON-HODGKIN^S LYMPHOMA STAGE IV
     Dosage: 40 MG/M2, PER DAY ON DAYS 1-5 ORAL
     Route: 048
  11. ANTIBIOTICS(ANTIBIOTICS) [Concomitant]

REACTIONS (8)
  - Disease progression [None]
  - Arthralgia [None]
  - Joint swelling [None]
  - Weight decreased [None]
  - Drug ineffective [None]
  - T-cell lymphoma [None]
  - Computerised tomogram abnormal [None]
  - Tumour invasion [None]
